FAERS Safety Report 17764881 (Version 1)
Quarter: 2020Q2

REPORT INFORMATION
  Report Type: Spontaneous
  Country: FR (occurrence: FR)
  Receive Date: 20200511
  Receipt Date: 20200511
  Transmission Date: 20200714
  Serious: Yes (Other)
  Sender: FDA-Public Use
  Company Number: NVSC2020FR017552

PATIENT
  Age: 73 Year
  Sex: Female

DRUGS (2)
  1. IMATINIB. [Suspect]
     Active Substance: IMATINIB MESYLATE
     Indication: CHRONIC MYELOID LEUKAEMIA
     Dosage: 400 MG, QD
     Route: 065
  2. HYDROXYUREA. [Suspect]
     Active Substance: HYDROXYUREA
     Indication: CHRONIC MYELOID LEUKAEMIA
     Dosage: 1500 MG, QD
     Route: 065

REACTIONS (8)
  - Therapeutic product effect decreased [Unknown]
  - Chronic myeloid leukaemia [Unknown]
  - Palpitations [Unknown]
  - Platelet count increased [Unknown]
  - Thrombocytosis [Unknown]
  - Headache [Unknown]
  - Gene mutation [Unknown]
  - Therapy non-responder [Unknown]
